FAERS Safety Report 6270940-X (Version None)
Quarter: 2009Q3

REPORT INFORMATION
  Report Type: 
  Country: None (occurrence: None)
  Receive Date: 20090716
  Receipt Date: 20090706
  Transmission Date: 20100115
  Serious: Yes (Other)
  Sender: FDA-Public Use
  Company Number: CA-ELI_LILLY_AND_COMPANY-CA200907001267

PATIENT
  Age: 6 Year
  Sex: Male

DRUGS (4)
  1. STRATTERA [Suspect]
     Dosage: 10 MG, UNKNOWN
     Route: 065
     Dates: start: 20090218, end: 20090304
  2. STRATTERA [Suspect]
     Dosage: 18 MG, UNKNOWN
     Route: 065
     Dates: start: 20090304, end: 20090318
  3. STRATTERA [Suspect]
     Dosage: 25 MG, UNKNOWN
     Route: 065
     Dates: start: 20090318, end: 20090618
  4. CONCERTA [Concomitant]
     Dosage: 18 MG, DAILY (1/D)
     Route: 065

REACTIONS (3)
  - FATIGUE [None]
  - HEPATIC FUNCTION ABNORMAL [None]
  - MALAISE [None]
